FAERS Safety Report 6399369-0 (Version None)
Quarter: 2009Q4

REPORT INFORMATION
  Report Type: 
  Country: None (occurrence: None)
  Receive Date: 20091014
  Receipt Date: 20091005
  Transmission Date: 20100525
  Serious: Yes (Hospitalization)
  Sender: FDA-Public Use
  Company Number: US-ASTRAZENECA-2009SE18089

PATIENT
  Age: 22520 Day
  Sex: Female
  Weight: 68 kg

DRUGS (6)
  1. NEXIUM [Suspect]
     Indication: GASTROOESOPHAGEAL REFLUX DISEASE
     Route: 048
     Dates: start: 20020101
  2. PRILOSEC OTC [Suspect]
     Route: 048
  3. SYNTHROID [Concomitant]
     Indication: THYROID DISORDER
  4. SIMVASTATIN [Concomitant]
     Indication: BLOOD CHOLESTEROL INCREASED
  5. VITAMIN D/CALCIUM [Concomitant]
  6. HYDROCHLOROTHIAZIDE [Concomitant]
     Indication: HYPERTENSION

REACTIONS (5)
  - BIOPSY STOMACH [None]
  - DRUG INEFFECTIVE [None]
  - GASTRIC MUCOSAL HYPERTROPHY [None]
  - MUCOSAL DRYNESS [None]
  - THYROID OPERATION [None]
